FAERS Safety Report 5485598-7 (Version None)
Quarter: 2007Q4

REPORT INFORMATION
  Report Type: 
  Country: None (occurrence: None)
  Receive Date: 20071011
  Receipt Date: 20071011
  Transmission Date: 20080405
  Serious: Yes (Other)
  Sender: FDA-Public Use
  Company Number: None

PATIENT
  Age: 29 Year
  Sex: Male

DRUGS (2)
  1. VISIPAQUE [Suspect]
     Indication: CARDIAC IMAGING PROCEDURE
     Dosage: 75ML  ONCE  IV BOLUS
     Route: 040
     Dates: start: 20070924, end: 20070924
  2. VISIPAQUE [Suspect]
     Indication: SCAN WITH CONTRAST
     Dosage: 75ML  ONCE  IV BOLUS
     Route: 040
     Dates: start: 20070924, end: 20070924

REACTIONS (1)
  - URTICARIA [None]
